FAERS Safety Report 18847740 (Version 2)
Quarter: 2021Q3

REPORT INFORMATION
  Report Type: Report from Study
  Country: DE (occurrence: DE)
  Receive Date: 20210204
  Receipt Date: 20210727
  Transmission Date: 20211014
  Serious: Yes (Other)
  Sender: FDA-Public Use
  Company Number: DE-TAKEDA-DE201850685

PATIENT
  Sex: Female

DRUGS (4)
  1. TEDUGLUTIDE [Suspect]
     Active Substance: TEDUGLUTIDE
     Indication: SHORT-BOWEL SYNDROME
     Dosage: UNK
     Route: 065
     Dates: start: 20141022
  2. TEDUGLUTIDE [Suspect]
     Active Substance: TEDUGLUTIDE
     Indication: SHORT-BOWEL SYNDROME
     Dosage: UNK
     Route: 065
     Dates: start: 20141022
  3. TEDUGLUTIDE [Suspect]
     Active Substance: TEDUGLUTIDE
     Indication: SHORT-BOWEL SYNDROME
     Dosage: UNK
     Route: 065
     Dates: start: 20141022
  4. TEDUGLUTIDE [Suspect]
     Active Substance: TEDUGLUTIDE
     Indication: SHORT-BOWEL SYNDROME
     Dosage: UNK
     Route: 065
     Dates: start: 20141022

REACTIONS (9)
  - Urinary tract infection [Recovered/Resolved]
  - Hepatic steatosis [Not Recovered/Not Resolved]
  - Renal failure [Recovered/Resolved]
  - Osteoporosis [Not Recovered/Not Resolved]
  - Magnesium deficiency [Recovered/Resolved]
  - Hyperchromic anaemia [Not Recovered/Not Resolved]
  - Hypokalaemia [Recovered/Resolved]
  - Aortic arteriosclerosis [Not Recovered/Not Resolved]
  - Calcium deficiency [Recovered/Resolved]

NARRATIVE: CASE EVENT DATE: 20180101
